FAERS Safety Report 9440202 (Version 1)
Quarter: 2013Q3

REPORT INFORMATION
  Report Type: Spontaneous
  Country: DK (occurrence: DK)
  Receive Date: 20130805
  Receipt Date: 20130805
  Transmission Date: 20140515
  Serious: Yes (Other)
  Sender: FDA-Public Use
  Company Number: PHHY2013DK082295

PATIENT
  Age: 69 Year
  Sex: Female

DRUGS (2)
  1. ACLASTA [Suspect]
     Indication: OSTEOPOROSIS
     Dosage: 5 MG, 100 ML
     Route: 042
     Dates: start: 2004
  2. ACLASTA [Suspect]
     Dosage: 5 MG, 100 ML
     Route: 042
     Dates: start: 201210

REACTIONS (1)
  - Osteonecrosis of jaw [Recovered/Resolved]
